FAERS Safety Report 9781528 (Version 1)
Quarter: 2013Q4

REPORT INFORMATION
  Report Type: Spontaneous
  Country: JP (occurrence: JP)
  Receive Date: 20131224
  Receipt Date: 20131224
  Transmission Date: 20140711
  Serious: Yes (Other)
  Sender: FDA-Public Use
  Company Number: JP-BRISTOL-MYERS SQUIBB COMPANY-19923598

PATIENT
  Sex: 0

DRUGS (2)
  1. BARACLUDE TABS 0.5 MG [Suspect]
     Indication: CHRONIC HEPATITIS B
     Route: 048
  2. GEMZAR [Suspect]
     Route: 042

REACTIONS (1)
  - Acute hepatitis B [Unknown]
